FAERS Safety Report 8608631-X (Version None)
Quarter: 2012Q3

REPORT INFORMATION
  Report Type: 
  Country: None (occurrence: None)
  Receive Date: 20120821
  Receipt Date: 20120814
  Transmission Date: 20120928
  Serious: Yes (Other)
  Sender: FDA-Public Use
  Company Number: US-ABBOTT-12P-163-0941077-00

PATIENT
  Sex: Male
  Weight: 131.66 kg

DRUGS (10)
  1. INSULIN [Concomitant]
     Indication: DIABETES MELLITUS
     Dosage: DOSE CHANGES BASED ON BLOOD SUGARS
  2. GABAPENTIN [Concomitant]
     Indication: DIABETIC NEUROPATHY
  3. LISINOPRIL [Concomitant]
     Indication: HYPERTENSION
  4. VITAMIN D [Concomitant]
     Indication: PRODUCT USED FOR UNKNOWN INDICATION
     Dosage: DAILY
  5. HUMIRA [Suspect]
     Indication: PSORIATIC ARTHROPATHY
     Dates: start: 20120417
  6. METFORMIN HCL [Concomitant]
     Indication: DIABETES MELLITUS
     Dosage: 4 TABS WITH DINNER
  7. ACIPHEX [Concomitant]
     Indication: GASTROOESOPHAGEAL REFLUX DISEASE
  8. SIMVASTATIN [Concomitant]
     Indication: BLOOD CHOLESTEROL INCREASED
  9. ASPIRIN [Concomitant]
     Indication: PROPHYLAXIS
  10. NABUMETONE [Concomitant]
     Indication: ARTHRITIS

REACTIONS (2)
  - INTERVERTEBRAL DISC PROTRUSION [None]
  - BRAIN NEOPLASM [None]
